FAERS Safety Report 8548436 (Version 3)
Quarter: 2013Q1

REPORT INFORMATION
  Report Type: Spontaneous
  Country: US (occurrence: None)
  Receive Date: 20120424
  Receipt Date: 20121207
  Transmission Date: 20140127
  Serious: Yes (Hospitalization)
  Sender: FDA-Public Use
  Company Number: 2012030830

PATIENT
  Age: 69 Year
  Sex: Female
  Weight: 47.17 kg

DRUGS (25)
  1. HIZENTRA [Suspect]
     Indication: IMMUNODEFICIENCY COMMON VARIABLE
     Dosage: 5 G 1X/WEEK, 1 GM (5 ML) RATE OF INFUSION UNKNOWN SUBCUTANEOUS
     Dates: start: 20120106, end: 20120106
  2. COZAAR [Concomitant]
  3. RESTASIS [Concomitant]
  4. HYDROCHLOROTHIAZIDE (HYDROCHLOROTHIAZIDE) [Concomitant]
  5. ACTONEL [Concomitant]
  6. RANITIDINE HYDROCHLORIDE [Concomitant]
  7. MENS ROGAINE UNSCENTED FORMULA [Concomitant]
  8. BETAPACE [Concomitant]
  9. ACETAMINOPHEN (PARACETAMOL) [Concomitant]
  10. CLOTRIMAZOLE [Concomitant]
  11. PREDNISONE [Concomitant]
  12. SINGULAIR [Concomitant]
  13. IPRATROPIUM BROMIDE [Concomitant]
  14. NASONEX [Concomitant]
  15. VITAMIN C [Concomitant]
  16. PULMICORT FLEXHALER [Concomitant]
  17. ASPIRIN [Concomitant]
  18. XOPENEX [Concomitant]
  19. NEPHROCAPS (NEPHROCAPS) [Concomitant]
  20. FERROUS SULFATE [Concomitant]
  21. COUMADIN (WARFARIN SODIUM) [Concomitant]
  22. DIPHENHYDRAMINE (DIPHENHYDRAMINE) [Concomitant]
  23. LIDOCAINE/PRILOCAINE (EMLA /00675501/) [Concomitant]
  24. EPINEPHRINE (EPINEPHRINE) [Concomitant]
  25. LMX (LIDOCAINE) [Concomitant]

REACTIONS (7)
  - Fatigue [None]
  - Diarrhoea [None]
  - Asthenia [None]
  - Malaise [None]
  - Deep vein thrombosis [None]
  - Ecchymosis [None]
  - Hypotension [None]
